FAERS Safety Report 13124466 (Version 1)
Quarter: 2017Q1

REPORT INFORMATION
  Report Type: Spontaneous
  Country: US (occurrence: US)
  Receive Date: 20170118
  Receipt Date: 20170118
  Transmission Date: 20170428
  Serious: No
  Sender: FDA-Public Use
  Company Number: US-PFIZER INC-2017016416

PATIENT
  Sex: Male

DRUGS (2)
  1. GABAPENTIN. [Suspect]
     Active Substance: GABAPENTIN
     Dosage: 300 MG, 2X/DAY
     Dates: start: 20161130, end: 20161219
  2. CELECOXIB. [Suspect]
     Active Substance: CELECOXIB
     Dosage: 100 MG, UNK
     Dates: start: 20161205, end: 20161214

REACTIONS (2)
  - Pruritus [Not Recovered/Not Resolved]
  - Condition aggravated [Unknown]

NARRATIVE: CASE EVENT DATE: 2016
